FAERS Safety Report 8205408-4 (Version None)
Quarter: 2012Q1

REPORT INFORMATION
  Report Type: 
  Country: None (occurrence: None)
  Receive Date: 20120313
  Receipt Date: 20120306
  Transmission Date: 20120608
  Serious: Yes (Hospitalization, Disabling)
  Sender: FDA-Public Use
  Company Number: US-MERCK-1109USA02801

PATIENT
  Age: 57 Year
  Sex: Female
  Weight: 80 kg

DRUGS (3)
  1. FOSAMAX [Suspect]
     Indication: OSTEOPOROSIS
     Route: 048
     Dates: start: 19991201, end: 20100501
  2. SINGULAIR [Concomitant]
     Route: 065
  3. ZYRTEC [Concomitant]
     Route: 065

REACTIONS (13)
  - JOINT DISLOCATION [None]
  - FEMUR FRACTURE [None]
  - BREAST CYST [None]
  - POLYP COLORECTAL [None]
  - POST INFLAMMATORY PIGMENTATION CHANGE [None]
  - SCIATICA [None]
  - HYPERTENSION [None]
  - JOINT INJURY [None]
  - ROTATOR CUFF SYNDROME [None]
  - GOITRE [None]
  - OSTEOARTHRITIS [None]
  - SKIN LESION [None]
  - DIABETES MELLITUS [None]
